FAERS Safety Report 15423224 (Version 1)
Quarter: 2018Q3

REPORT INFORMATION
  Report Type: Spontaneous
  Country: AU (occurrence: AU)
  Receive Date: 20180925
  Receipt Date: 20180925
  Transmission Date: 20181010
  Serious: Yes (Other)
  Sender: FDA-Public Use
  Company Number: AU-NAPPMUNDI-GBR-2018-0059518

PATIENT
  Age: 51 Year
  Sex: Female

DRUGS (5)
  1. VALIUM [Concomitant]
     Active Substance: DIAZEPAM
     Dosage: 2 MG, UNK
  2. PANADOL [Concomitant]
     Active Substance: ACETAMINOPHEN
  3. PANADEINE                          /00116401/ [Concomitant]
     Active Substance: ACETAMINOPHEN\CODEINE PHOSPHATE
  4. NORSPAN [Suspect]
     Active Substance: BUPRENORPHINE
     Indication: PRODUCT USED FOR UNKNOWN INDICATION
     Dosage: 10 MCG, Q1H, 1 APPLICATION WEEKLY
     Route: 062
     Dates: start: 20180514, end: 20180517
  5. NORSPAN [Suspect]
     Active Substance: BUPRENORPHINE
     Dosage: 5 MCG, UNK
     Route: 065
     Dates: end: 20180514

REACTIONS (2)
  - Panic attack [Recovered/Resolved]
  - Anxiety [Recovered/Resolved]
